FAERS Safety Report 8167197-1 (Version None)
Quarter: 2012Q1

REPORT INFORMATION
  Report Type: 
  Country: None (occurrence: None)
  Receive Date: 20120227
  Receipt Date: 20120219
  Transmission Date: 20120608
  Serious: Yes (Hospitalization)
  Sender: FDA-Public Use
  Company Number: US-JNJFOC-20120209826

PATIENT
  Sex: Female
  Weight: 88.45 kg

DRUGS (14)
  1. LEVAQUIN [Suspect]
     Indication: BRONCHITIS
     Route: 048
     Dates: start: 20120210, end: 20120213
  2. NEXIUM [Concomitant]
     Indication: GASTROOESOPHAGEAL REFLUX DISEASE
     Route: 048
  3. METOPROLOL SUCCINATE [Concomitant]
     Indication: BLOOD PRESSURE
     Route: 048
  4. POTASSIUM CHLORIDE [Concomitant]
     Indication: MINERAL SUPPLEMENTATION
     Route: 048
  5. LEVOTHYROXINE SODIUM [Concomitant]
     Indication: THYROID DISORDER
     Route: 048
  6. FUROSEMIDE [Concomitant]
     Indication: OEDEMA
     Route: 048
  7. MUCINEX [Concomitant]
     Indication: NASAL CONGESTION
     Route: 048
  8. NEXIUM [Concomitant]
     Indication: IMPAIRED GASTRIC EMPTYING
     Route: 048
  9. SENOKOT [Concomitant]
     Indication: ABNORMAL FAECES
     Route: 048
  10. ARICEPT [Concomitant]
     Indication: DEMENTIA
     Route: 048
  11. ASPIRIN [Concomitant]
     Indication: PRODUCT USED FOR UNKNOWN INDICATION
     Route: 048
  12. SIMVASTATIN [Concomitant]
     Indication: BLOOD CHOLESTEROL
     Route: 048
  13. NAMENDA [Concomitant]
     Indication: DEMENTIA
     Route: 048
  14. UNKNOWN MEDICATION [Concomitant]
     Indication: BLOOD PRESSURE
     Route: 048
     Dates: start: 20120210, end: 20120213

REACTIONS (3)
  - RENAL FAILURE ACUTE [None]
  - TENDONITIS [None]
  - FUNGAL INFECTION [None]
